FAERS Safety Report 5775437-9 (Version None)
Quarter: 2008Q2

REPORT INFORMATION
  Report Type: 
  Country: None (occurrence: None)
  Receive Date: 20080613
  Receipt Date: 20080528
  Transmission Date: 20081010
  Serious: Yes (Other)
  Sender: FDA-Public Use
  Company Number: 2008PV000047

PATIENT
  Sex: Female

DRUGS (1)
  1. DEPOCYT [Suspect]
     Indication: METASTASES TO MENINGES
     Dosage: 50 MG;QOW;ITVN
     Dates: start: 20080502, end: 20080514

REACTIONS (3)
  - DISEASE PROGRESSION [None]
  - NAUSEA [None]
  - VOMITING [None]
